FAERS Safety Report 10189571 (Version 2)
Quarter: 2014Q2

REPORT INFORMATION
  Report Type: Spontaneous
  Country: JP (occurrence: JP)
  Receive Date: 20140522
  Receipt Date: 20140610
  Transmission Date: 20141212
  Serious: Yes (Hospitalization)
  Sender: FDA-Public Use
  Company Number: JP-ASTRAZENECA-2014SE33504

PATIENT
  Age: 22 Year
  Sex: Female

DRUGS (9)
  1. NEXIUM [Suspect]
     Indication: GASTROOESOPHAGEAL REFLUX DISEASE
     Route: 048
  2. RIVOTRIL [Concomitant]
     Dosage: DOSE UNKNOWN
     Route: 048
  3. ROZEREM [Concomitant]
     Dosage: DOSE UNKNOWN
     Route: 048
  4. SEROQUEL [Concomitant]
     Dosage: DOSE UNKNOWN
     Route: 048
  5. LONASEN [Concomitant]
     Dosage: DOSE UNKNOWN
     Route: 048
  6. TASMOLIN [Concomitant]
     Dosage: DOSE UNKNOWN
     Route: 048
  7. MAGLAX [Concomitant]
     Dosage: DOSE UNKNOWN
     Route: 048
  8. MAALOX [Concomitant]
     Dosage: DOSE UNKNOWN
     Route: 048
  9. GASLON [Concomitant]
     Dosage: DOSE UNKNOWN
     Route: 048

REACTIONS (3)
  - Mastitis [Recovered/Resolved]
  - Erythema nodosum [Recovered/Resolved]
  - Granuloma [Recovered/Resolved]
